FAERS Safety Report 25954570 (Version 4)
Quarter: 2025Q4

REPORT INFORMATION
  Report Type: Spontaneous
  Country: EU (occurrence: EU)
  Receive Date: 20251024
  Receipt Date: 20251204
  Transmission Date: 20260117
  Serious: Yes (Hospitalization, Other)
  Sender: AUROBINDO
  Company Number: EU-JUVISE-2025000606

PATIENT
  Age: 82 Year
  Sex: Female
  Weight: 70 kg

DRUGS (7)
  1. EXEMESTANE [Suspect]
     Active Substance: EXEMESTANE
     Indication: Breast cancer
     Dosage: 25 MILLIGRAM, DAILY
     Dates: start: 20240815, end: 20250910
  2. LETROZOLE [Suspect]
     Active Substance: LETROZOLE
     Indication: Breast cancer
     Dosage: 2.5 MILLIGRAM, ONCE A DAY (2.5 MG DAILY)
     Dates: start: 20211220, end: 20240814
  3. ANASTROZOLE [Suspect]
     Active Substance: ANASTROZOLE
     Indication: Breast cancer
     Dosage: 1 MILLIGRAM, ONCE A DAY (1 MG DAILY)
     Dates: start: 20211004, end: 20211209
  4. ANASTROZOLE [Suspect]
     Active Substance: ANASTROZOLE
     Dosage: 1 MILLIGRAM, ONCE A DAY (1 MG DAILY)
     Dates: start: 20211004, end: 20211219
  5. PALBOCICLIB [Suspect]
     Active Substance: PALBOCICLIB
     Indication: Breast cancer
     Dosage: 100 MILLIGRAM, ONCE A DAY (SECOND REGIMEN: 100 MG, DAILY FROM DAY 1 TO DAY 21 EVERY 28-DAY CYCLE)
     Dates: start: 20211004
  6. PALBOCICLIB [Suspect]
     Active Substance: PALBOCICLIB
     Dosage: 125 MILLIGRAM, ONCE A DAY (FIRST REGIMEN: 125 MG, DAILY FROM DAY 1 TO DAY 21, EVERY 28-DAY CYCLE)
     Dates: start: 20211129, end: 20220213
  7. PALBOCICLIB [Suspect]
     Active Substance: PALBOCICLIB
     Dosage: 100 MILLIGRAM, ONCE A DAY FROM DAY 1 TO DAY 21 EVERY 28-DAY CYCLE
     Dates: start: 20220221

REACTIONS (4)
  - Acute kidney injury [Recovered/Resolved]
  - Lung neoplasm malignant [Recovering/Resolving]
  - Second primary malignancy [Recovered/Resolved]
  - Lung adenocarcinoma [Recovered/Resolved]

NARRATIVE: CASE EVENT DATE: 20250904
